FAERS Safety Report 4906257-2 (Version None)
Quarter: 2006Q1

REPORT INFORMATION
  Report Type: 
  Country: None (occurrence: None)
  Receive Date: 20060207
  Receipt Date: 20060130
  Transmission Date: 20060701
  Serious: No
  Sender: FDA-Public Use
  Company Number: CLOF-10176

PATIENT
  Age: 75 Year
  Sex: Female

DRUGS (6)
  1. CLOFARABINE [Suspect]
     Indication: ACUTE MYELOID LEUKAEMIA
     Dosage: 52 MG QD X 5 IV
     Route: 042
     Dates: start: 20051114, end: 20051118
  2. FUROSEMIDE [Concomitant]
  3. TAZOCIN [Concomitant]
  4. GENTAMICIN [Concomitant]
  5. FUROSEMIDE [Concomitant]
  6. ELTROXIN [Concomitant]

REACTIONS (15)
  - ATRIAL FIBRILLATION [None]
  - FEBRILE NEUTROPENIA [None]
  - HAEMODIALYSIS [None]
  - HAEMOGLOBIN DECREASED [None]
  - HYPOALBUMINAEMIA [None]
  - HYPOTHYROIDISM [None]
  - MALAISE [None]
  - NEUTROPENIC SEPSIS [None]
  - OEDEMA PERIPHERAL [None]
  - PLATELET COUNT DECREASED [None]
  - PLEURAL EFFUSION [None]
  - PNEUMONIA [None]
  - RED BLOOD CELL COUNT DECREASED [None]
  - RENAL FAILURE ACUTE [None]
  - SEPSIS [None]
